FAERS Safety Report 13178820 (Version 1)
Quarter: 2017Q1

REPORT INFORMATION
  Report Type: Spontaneous
  Country: US (occurrence: US)
  Receive Date: 20170202
  Receipt Date: 20170202
  Transmission Date: 20170428
  Serious: Yes (Hospitalization)
  Sender: FDA-Public Use
  Company Number: None

PATIENT
  Age: 55 Year
  Sex: Male

DRUGS (7)
  1. PROCRIT [Suspect]
     Active Substance: ERYTHROPOIETIN
     Indication: ANAEMIA
     Dosage: DOSE - 10,000U
     Route: 058
     Dates: start: 20170106
  2. CARAFATE [Concomitant]
     Active Substance: SUCRALFATE
  3. OZURDEX [Concomitant]
     Active Substance: DEXAMETHASONE
  4. STOOL SOFTENER (DOCUSATE SODIUM) [Concomitant]
     Active Substance: DOCUSATE SODIUM
  5. MACROBID [Concomitant]
     Active Substance: NITROFURANTOIN\NITROFURANTOIN MONOHYDRATE
  6. OXYCODONE [Concomitant]
     Active Substance: OXYCODONE
  7. CALCIUM [Concomitant]
     Active Substance: CALCIUM

REACTIONS (1)
  - Hospitalisation [None]

NARRATIVE: CASE EVENT DATE: 20170201
